FAERS Safety Report 21068868 (Version 1)
Quarter: 2022Q3

REPORT INFORMATION
  Report Type: Spontaneous
  Country: US (occurrence: None)
  Receive Date: 20220712
  Receipt Date: 20220712
  Transmission Date: 20221026
  Serious: No
  Sender: FDA-Public Use
  Company Number: 2022A250720

PATIENT
  Sex: Male
  Weight: 104.3 kg

DRUGS (1)
  1. BUDESONIDE\FORMOTEROL\GLYCOPYRRONIUM [Suspect]
     Active Substance: BUDESONIDE\FORMOTEROL\GLYCOPYRRONIUM
     Indication: Chronic obstructive pulmonary disease
     Dosage: BREZTRI 160/9/4.8 MCG 2 PUFFS TWICE A DAY
     Route: 055

REACTIONS (3)
  - Dysphonia [Unknown]
  - Cough [Unknown]
  - Dry throat [Unknown]
